FAERS Safety Report 6635483-X (Version None)
Quarter: 2010Q1

REPORT INFORMATION
  Report Type: 
  Country: None (occurrence: None)
  Receive Date: 20100315
  Receipt Date: 20090601
  Transmission Date: 20100710
  Serious: No
  Sender: FDA-Public Use
  Company Number: US-ABBOTT-09P-163-0577086-00

PATIENT
  Sex: Male

DRUGS (2)
  1. DEPAKOTE [Suspect]
     Indication: CONVULSION
     Route: 048
  2. TEGRETOL [Concomitant]
     Indication: CONVULSION
     Route: 048

REACTIONS (2)
  - NAUSEA [None]
  - PANCREATIC DISORDER [None]
